FAERS Safety Report 18765122 (Version 3)
Quarter: 2021Q1

REPORT INFORMATION
  Report Type: Report from Study
  Country: None (occurrence: US)
  Receive Date: 20210121
  Receipt Date: 20210216
  Transmission Date: 20210419
  Serious: Yes (Other)
  Sender: FDA-Public Use
  Company Number: US-ABBVIE-21K-163-3730504-00

PATIENT
  Age: 35 Year
  Sex: Female

DRUGS (2)
  1. RINVOQ [Suspect]
     Active Substance: UPADACITINIB
     Indication: RHEUMATOID ARTHRITIS
     Route: 048
     Dates: start: 20200629, end: 20201120
  2. RINVOQ [Suspect]
     Active Substance: UPADACITINIB
     Route: 048
     Dates: start: 20201209

REACTIONS (8)
  - Rotator cuff syndrome [Recovering/Resolving]
  - Arthralgia [Recovering/Resolving]
  - Fibrous dysplasia of jaw [Recovering/Resolving]
  - Post procedural complication [Unknown]
  - Musculoskeletal stiffness [Recovering/Resolving]
  - Muscular weakness [Recovering/Resolving]
  - Rheumatoid arthritis [Recovering/Resolving]
  - Oral disorder [Not Recovered/Not Resolved]

NARRATIVE: CASE EVENT DATE: 202010
